FAERS Safety Report 4823340-0 (Version None)
Quarter: 2005Q4

REPORT INFORMATION
  Report Type: 
  Country: None (occurrence: None)
  Receive Date: 20051108
  Receipt Date: 20051108
  Transmission Date: 20060501
  Serious: Yes (Other)
  Sender: FDA-Public Use
  Company Number: None

PATIENT
  Age: 5 Year
  Sex: Female
  Weight: 14.5151 kg

DRUGS (1)
  1. SEPTRA [Suspect]
     Indication: URINARY TRACT INFECTION
     Dosage: 7.5ML  BID  PO
     Route: 048
     Dates: start: 20051019, end: 20051025

REACTIONS (1)
  - RASH GENERALISED [None]
